FAERS Safety Report 8831644 (Version 2)
Quarter: 2012Q4

REPORT INFORMATION
  Report Type: 
  Country: JP (occurrence: JP)
  Receive Date: 20121009
  Receipt Date: 20121025
  Transmission Date: 20130627
  Serious: Yes (Hospitalization)
  Sender: FDA-Public Use
  Company Number: JP-GLAXOSMITHKLINE-B0835792A

PATIENT
  Age: 16 Year
  Sex: Male

DRUGS (3)
  1. LAMICTAL [Suspect]
     Indication: STATUS EPILEPTICUS
     Dosage: 25MG Twice per day
     Route: 048
     Dates: start: 20101115, end: 20101128
  2. LAMICTAL [Suspect]
     Indication: STATUS EPILEPTICUS
     Route: 048
     Dates: start: 20101129, end: 20101215
  3. DEPAKENE R [Concomitant]
     Indication: STATUS EPILEPTICUS
     Dosage: 800MG Per day
     Route: 048
     Dates: start: 20071212

REACTIONS (10)
  - Drug reaction with eosinophilia and systemic symptoms [Recovered/Resolved]
  - Generalised erythema [Recovering/Resolving]
  - Pyrexia [Recovering/Resolving]
  - Cytomegalovirus infection [Unknown]
  - Rash [Unknown]
  - Skin exfoliation [Unknown]
  - Pigmentation disorder [Unknown]
  - White blood cell count increased [Unknown]
  - Eosinophil count increased [Unknown]
  - Alanine aminotransferase increased [Unknown]
